FAERS Safety Report 16181335 (Version 12)
Quarter: 2019Q4

REPORT INFORMATION
  Report Type: Spontaneous
  Country: US (occurrence: US)
  Receive Date: 20190410
  Receipt Date: 20191219
  Transmission Date: 20200122
  Serious: Yes (Congenital Anomaly, Other)
  Sender: FDA-Public Use
  Company Number: PHEH2019US015679

PATIENT
  Sex: Female

DRUGS (2)
  1. ZOFRAN [Suspect]
     Active Substance: ONDANSETRON HYDROCHLORIDE
     Indication: FOETAL EXPOSURE DURING PREGNANCY
     Route: 064
  2. ONDANSETRON. [Suspect]
     Active Substance: ONDANSETRON
     Indication: FOETAL EXPOSURE DURING PREGNANCY
     Dosage: MOTHER^S DOSE: 1 DF, EVERY 08 HOURS (Q8H), AS NEEDED (PRN)
     Route: 064

REACTIONS (37)
  - Right ventricular dilatation [Unknown]
  - Poor feeding infant [Unknown]
  - Upper respiratory tract infection [Unknown]
  - Right ventricular enlargement [Unknown]
  - Oral pain [Unknown]
  - Nasal congestion [Unknown]
  - Heart rate irregular [Unknown]
  - Oropharyngeal pain [Unknown]
  - Pain [Unknown]
  - Cardiac murmur [Unknown]
  - Right atrial dilatation [Unknown]
  - Emotional distress [Unknown]
  - Herpangina [Unknown]
  - Injury [Not Recovered/Not Resolved]
  - Deformity [Unknown]
  - Pyrexia [Unknown]
  - Tonsillar hypertrophy [Unknown]
  - Viral pharyngitis [Unknown]
  - Lymphadenopathy [Unknown]
  - Cough [Unknown]
  - Foetal exposure during pregnancy [Unknown]
  - Peripheral coldness [Unknown]
  - Viral rash [Unknown]
  - Nausea [Unknown]
  - Chest pain [Unknown]
  - Urinary tract infection [Unknown]
  - Laevocardia [Unknown]
  - Gastroenteritis viral [Unknown]
  - Epistaxis [Unknown]
  - Dysuria [Unknown]
  - Erythema [Unknown]
  - Atrial septal defect [Unknown]
  - Pneumonia [Unknown]
  - Anhedonia [Unknown]
  - Rash [Unknown]
  - Abdominal pain [Unknown]
  - Diarrhoea [Unknown]
